FAERS Safety Report 25482529 (Version 1)
Quarter: 2025Q2

REPORT INFORMATION
  Report Type: Spontaneous
  Country: RU (occurrence: RU)
  Receive Date: 20250626
  Receipt Date: 20250626
  Transmission Date: 20250717
  Serious: Yes (Life-Threatening, Hospitalization)
  Sender: SANDOZ
  Company Number: RU-MLMSERVICE-20250612-PI536494-00218-1

PATIENT
  Age: 34 Year
  Sex: Female

DRUGS (51)
  1. CYCLOPHOSPHAMIDE [Suspect]
     Active Substance: CYCLOPHOSPHAMIDE
     Indication: Plasmablastic lymphoma
     Route: 065
     Dates: start: 20230923, end: 20230927
  2. CYCLOPHOSPHAMIDE [Suspect]
     Active Substance: CYCLOPHOSPHAMIDE
     Indication: Diffuse large B-cell lymphoma stage IV
  3. CYCLOPHOSPHAMIDE [Suspect]
     Active Substance: CYCLOPHOSPHAMIDE
     Indication: Metastases to bone
  4. CYCLOPHOSPHAMIDE [Suspect]
     Active Substance: CYCLOPHOSPHAMIDE
     Indication: Metastases to central nervous system
  5. CYCLOPHOSPHAMIDE [Suspect]
     Active Substance: CYCLOPHOSPHAMIDE
     Indication: Metastases to heart
  6. CYCLOPHOSPHAMIDE [Suspect]
     Active Substance: CYCLOPHOSPHAMIDE
     Indication: Metastases to kidney
  7. CYCLOPHOSPHAMIDE [Suspect]
     Active Substance: CYCLOPHOSPHAMIDE
     Indication: Metastases to lymph nodes
  8. CYCLOPHOSPHAMIDE [Suspect]
     Active Substance: CYCLOPHOSPHAMIDE
     Indication: Metastases to pancreas
  9. CYCLOPHOSPHAMIDE [Suspect]
     Active Substance: CYCLOPHOSPHAMIDE
     Indication: Metastases to thyroid
  10. CYTARABINE [Suspect]
     Active Substance: CYTARABINE
     Indication: Central nervous system leukaemia
     Route: 037
     Dates: start: 202309
  11. CYTARABINE [Suspect]
     Active Substance: CYTARABINE
     Indication: Chemotherapy
  12. DECADRON (DEXAMETHASONE SODIUM PHOSPHATE) [Suspect]
     Active Substance: DEXAMETHASONE SODIUM PHOSPHATE
     Indication: Central nervous system leukaemia
     Route: 037
     Dates: start: 202309
  13. DECADRON (DEXAMETHASONE SODIUM PHOSPHATE) [Suspect]
     Active Substance: DEXAMETHASONE SODIUM PHOSPHATE
     Indication: Chemotherapy
  14. DOXORUBICIN HYDROCHLORIDE [Suspect]
     Active Substance: DOXORUBICIN HYDROCHLORIDE
     Indication: Plasmablastic lymphoma
     Route: 065
     Dates: start: 20230923, end: 20230927
  15. DOXORUBICIN HYDROCHLORIDE [Suspect]
     Active Substance: DOXORUBICIN HYDROCHLORIDE
     Indication: Diffuse large B-cell lymphoma stage IV
  16. DOXORUBICIN HYDROCHLORIDE [Suspect]
     Active Substance: DOXORUBICIN HYDROCHLORIDE
     Indication: Metastases to bone
  17. DOXORUBICIN HYDROCHLORIDE [Suspect]
     Active Substance: DOXORUBICIN HYDROCHLORIDE
     Indication: Metastases to central nervous system
  18. DOXORUBICIN HYDROCHLORIDE [Suspect]
     Active Substance: DOXORUBICIN HYDROCHLORIDE
     Indication: Metastases to heart
  19. DOXORUBICIN HYDROCHLORIDE [Suspect]
     Active Substance: DOXORUBICIN HYDROCHLORIDE
     Indication: Metastases to kidney
  20. DOXORUBICIN HYDROCHLORIDE [Suspect]
     Active Substance: DOXORUBICIN HYDROCHLORIDE
     Indication: Metastases to lymph nodes
  21. DOXORUBICIN HYDROCHLORIDE [Suspect]
     Active Substance: DOXORUBICIN HYDROCHLORIDE
     Indication: Metastases to pancreas
  22. DOXORUBICIN HYDROCHLORIDE [Suspect]
     Active Substance: DOXORUBICIN HYDROCHLORIDE
     Indication: Metastases to thyroid
  23. ETOPOSIDE [Suspect]
     Active Substance: ETOPOSIDE
     Indication: Plasmablastic lymphoma
     Route: 065
     Dates: start: 20230923, end: 20230927
  24. ETOPOSIDE [Suspect]
     Active Substance: ETOPOSIDE
     Indication: Diffuse large B-cell lymphoma stage IV
  25. ETOPOSIDE [Suspect]
     Active Substance: ETOPOSIDE
     Indication: Metastases to bone
  26. ETOPOSIDE [Suspect]
     Active Substance: ETOPOSIDE
     Indication: Metastases to central nervous system
  27. ETOPOSIDE [Suspect]
     Active Substance: ETOPOSIDE
     Indication: Metastases to heart
  28. ETOPOSIDE [Suspect]
     Active Substance: ETOPOSIDE
     Indication: Metastases to kidney
  29. ETOPOSIDE [Suspect]
     Active Substance: ETOPOSIDE
     Indication: Metastases to lymph nodes
  30. ETOPOSIDE [Suspect]
     Active Substance: ETOPOSIDE
     Indication: Metastases to pancreas
  31. ETOPOSIDE [Suspect]
     Active Substance: ETOPOSIDE
     Indication: Metastases to thyroid
  32. METHOTREXATE [Suspect]
     Active Substance: METHOTREXATE
     Indication: Central nervous system leukaemia
     Route: 037
     Dates: start: 202309
  33. METHOTREXATE [Suspect]
     Active Substance: METHOTREXATE
     Indication: Chemotherapy
  34. PREDNISONE [Suspect]
     Active Substance: PREDNISONE
     Indication: Plasmablastic lymphoma
     Route: 065
  35. PREDNISONE [Suspect]
     Active Substance: PREDNISONE
     Indication: Diffuse large B-cell lymphoma stage IV
  36. PREDNISONE [Suspect]
     Active Substance: PREDNISONE
     Indication: Metastases to bone
  37. PREDNISONE [Suspect]
     Active Substance: PREDNISONE
     Indication: Metastases to central nervous system
  38. PREDNISONE [Suspect]
     Active Substance: PREDNISONE
     Indication: Metastases to heart
  39. PREDNISONE [Suspect]
     Active Substance: PREDNISONE
     Indication: Metastases to kidney
  40. PREDNISONE [Suspect]
     Active Substance: PREDNISONE
     Indication: Metastases to lymph nodes
  41. PREDNISONE [Suspect]
     Active Substance: PREDNISONE
     Indication: Metastases to pancreas
  42. PREDNISONE [Suspect]
     Active Substance: PREDNISONE
     Indication: Metastases to thyroid
  43. VINCRISTINE [Suspect]
     Active Substance: VINCRISTINE
     Indication: Plasmablastic lymphoma
     Route: 065
     Dates: start: 20230923, end: 20230927
  44. VINCRISTINE [Suspect]
     Active Substance: VINCRISTINE
     Indication: Diffuse large B-cell lymphoma stage IV
  45. VINCRISTINE [Suspect]
     Active Substance: VINCRISTINE
     Indication: Metastases to bone
  46. VINCRISTINE [Suspect]
     Active Substance: VINCRISTINE
     Indication: Metastases to central nervous system
  47. VINCRISTINE [Suspect]
     Active Substance: VINCRISTINE
     Indication: Metastases to heart
  48. VINCRISTINE [Suspect]
     Active Substance: VINCRISTINE
     Indication: Metastases to kidney
  49. VINCRISTINE [Suspect]
     Active Substance: VINCRISTINE
     Indication: Metastases to lymph nodes
  50. VINCRISTINE [Suspect]
     Active Substance: VINCRISTINE
     Indication: Metastases to pancreas
  51. VINCRISTINE [Suspect]
     Active Substance: VINCRISTINE
     Indication: Metastases to thyroid

REACTIONS (13)
  - Febrile neutropenia [Unknown]
  - Granulocytopenia [Not Recovered/Not Resolved]
  - Posterior reversible encephalopathy syndrome [Recovered/Resolved]
  - Diabetes insipidus [Unknown]
  - Osmotic demyelination syndrome [Recovered/Resolved]
  - Cytotoxic lesions of corpus callosum [Recovered/Resolved]
  - Hypovolaemia [Recovered/Resolved]
  - Enterocolitis [Unknown]
  - Oesophagitis ulcerative [Unknown]
  - Erosive oesophagitis [Unknown]
  - Thrombocytopenia [Not Recovered/Not Resolved]
  - Anaemia [Not Recovered/Not Resolved]
  - Hypotension [Unknown]

NARRATIVE: CASE EVENT DATE: 20231001
